FAERS Safety Report 4880140-3 (Version None)
Quarter: 2006Q1

REPORT INFORMATION
  Report Type: 
  Country: None (occurrence: None)
  Receive Date: 20060113
  Receipt Date: 20060109
  Transmission Date: 20060701
  Serious: Yes (Hospitalization)
  Sender: FDA-Public Use
  Company Number: US-KINGPHARMUSA00001-K200600014

PATIENT
  Age: 80 Year
  Sex: Female

DRUGS (10)
  1. ALTACE [Suspect]
     Dosage: 3.75 MG, QD
     Route: 048
     Dates: start: 20050115, end: 20050817
  2. ALTACE [Suspect]
     Dosage: 2.5 MG, QD
  3. FUROSEMIDE [Suspect]
     Dosage: 40 MG, QD
     Route: 048
  4. FUROSEMIDE [Suspect]
     Dosage: 20 MG, QD
     Route: 048
  5. DIGOXIN [Concomitant]
     Dosage: 1 U, QD
     Route: 048
     Dates: start: 20050115, end: 20050817
  6. DIGOXIN [Concomitant]
     Dosage: 1 U, QOD
  7. ARICEPT [Concomitant]
     Dosage: 10 MG, QD
     Route: 048
  8. EBIXA [Concomitant]
     Dosage: 2 U, QD
     Route: 048
  9. PLAVIX [Concomitant]
     Dosage: UNK, QD
     Dates: start: 20050115
  10. EFFEXOR [Concomitant]
     Dosage: 37.5 MG, QD

REACTIONS (11)
  - BLOOD ALBUMIN DECREASED [None]
  - BLOOD CREATININE INCREASED [None]
  - BLOOD UREA INCREASED [None]
  - DEHYDRATION [None]
  - ELECTROCARDIOGRAM ABNORMAL [None]
  - HYPERHIDROSIS [None]
  - HYPERKALAEMIA [None]
  - HYPOALBUMINAEMIA [None]
  - HYPOTHERMIA [None]
  - MALAISE [None]
  - RENAL FAILURE [None]
